FAERS Safety Report 23230401 (Version 1)
Quarter: 2023Q4

REPORT INFORMATION
  Report Type: Spontaneous
  Country: US (occurrence: None)
  Receive Date: 20231122
  Receipt Date: 20231122
  Transmission Date: 20240109
  Serious: Yes (Other)
  Sender: FDA-Public Use
  Company Number: None

PATIENT
  Age: 46 Year
  Sex: Female

DRUGS (1)
  1. ENTYVIO [Suspect]
     Active Substance: VEDOLIZUMAB

REACTIONS (5)
  - Abdominal pain [None]
  - Condition aggravated [None]
  - Constipation [None]
  - Abdominal distension [None]
  - Diarrhoea [None]
